FAERS Safety Report 25540081 (Version 1)
Quarter: 2025Q3

REPORT INFORMATION
  Report Type: Report from Study
  Country: US (occurrence: US)
  Receive Date: 20250710
  Receipt Date: 20250710
  Transmission Date: 20251021
  Serious: Yes (Hospitalization)
  Sender: TAIHO ONCOLOGY INC
  Company Number: US-TAIHOP-2024-011628

PATIENT
  Age: 81 Year
  Sex: Female
  Weight: 69.5 kg

DRUGS (2)
  1. INQOVI [Suspect]
     Active Substance: CEDAZURIDINE\DECITABINE
     Indication: Acute myeloid leukaemia
     Dosage: DECITABINE 35 MG + CEDAZURIDINE 100 MG, DAYS 1-3?CYCLE 1 STARTED ON 12/NOV/2024, CURRENT CYCLE UNKNO
     Route: 048
     Dates: start: 20241112
  2. TIBSOVO [Concomitant]
     Active Substance: IVOSIDENIB
     Indication: Acute myeloid leukaemia
     Route: 048
     Dates: start: 20231109

REACTIONS (7)
  - Infection [Unknown]
  - Abscess [Unknown]
  - Fatigue [Not Recovered/Not Resolved]
  - Inappropriate schedule of product administration [Unknown]
  - Head discomfort [Unknown]
  - Product use in unapproved indication [Unknown]
  - Limb discomfort [Unknown]
